FAERS Safety Report 7077409-3 (Version None)
Quarter: 2010Q4

REPORT INFORMATION
  Report Type: 
  Country: None (occurrence: None)
  Receive Date: 20101101
  Receipt Date: 20101015
  Transmission Date: 20110411
  Serious: No
  Sender: FDA-Public Use
  Company Number: US-ASTRAZENECA-2010SE49128

PATIENT
  Sex: Female

DRUGS (6)
  1. SEROQUEL XR [Suspect]
     Indication: BIPOLAR I DISORDER
     Route: 048
     Dates: start: 20100401
  2. TRAZODONE HCL [Concomitant]
     Route: 048
  3. DEPAKOTE [Concomitant]
     Route: 048
  4. TOPAMAX [Concomitant]
     Route: 048
  5. AMBIEN [Concomitant]
     Indication: SLEEP DISORDER
     Dosage: AS NEEDED
     Route: 048
  6. BUSPIRONE HCL [Concomitant]
     Indication: DEPRESSION
     Route: 048

REACTIONS (4)
  - DEPRESSION [None]
  - INSOMNIA [None]
  - MOOD ALTERED [None]
  - WHITE BLOOD CELL COUNT DECREASED [None]
